FAERS Safety Report 9783757 (Version 1)
Quarter: 2013Q4

REPORT INFORMATION
  Report Type: Spontaneous
  Country: GB (occurrence: None)
  Receive Date: 20131223
  Receipt Date: 20131223
  Transmission Date: 20140711
  Serious: Yes (Other)
  Sender: FDA-Public Use
  Company Number: AUR-APL-2013-10559

PATIENT
  Age: 50 Year
  Sex: Male
  Weight: 83 kg

DRUGS (3)
  1. FLUOXETINE [Suspect]
     Indication: PRODUCT USED FOR UNKNOWN INDICATION
     Dosage: UNKNOWN
     Dates: start: 20131022
  2. LEVOTHYROXINE (LEVOTHYROXINE) [Concomitant]
  3. MOMETASONE (MOMETASONE) [Concomitant]

REACTIONS (1)
  - Liver function test abnormal [None]
